FAERS Safety Report 6679040-8 (Version None)
Quarter: 2010Q2

REPORT INFORMATION
  Report Type: 
  Country: None (occurrence: None)
  Receive Date: 20100413
  Receipt Date: 20100401
  Transmission Date: 20101027
  Serious: Yes (Other)
  Sender: FDA-Public Use
  Company Number: PHHY2010IT20436

PATIENT
  Age: 57 Year
  Sex: Male

DRUGS (3)
  1. COTAREG [Suspect]
     Indication: HYPERTENSION
  2. LOBIVON [Concomitant]
  3. OMEPRAZOLE [Concomitant]

REACTIONS (1)
  - CLONUS [None]
